FAERS Safety Report 7053932-2 (Version None)
Quarter: 2010Q4

REPORT INFORMATION
  Report Type: 
  Country: None (occurrence: None)
  Receive Date: 20101013
  Receipt Date: 20101004
  Transmission Date: 20110411
  Serious: Yes (Other)
  Sender: FDA-Public Use
  Company Number: 2010SP046229

PATIENT
  Age: 72 Year
  Sex: Male
  Weight: 70 kg

DRUGS (11)
  1. ROCURONIUM BROMIDE [Suspect]
     Indication: NEUROMUSCULAR BLOCKING THERAPY
     Dosage: 85 MG; IV
     Route: 042
  2. PROPOFOL [Suspect]
     Indication: INDUCTION OF ANAESTHESIA
     Dosage: 120 MG
  3. SEVOFLURANE [Suspect]
     Indication: MAINTENANCE OF ANAESTHESIA
  4. REMIFENTANIL (REMIFENTANIL) [Suspect]
     Indication: MAINTENANCE OF ANAESTHESIA
     Dosage: 0.15 MCG/KG
  5. FENTANYL-100 [Suspect]
     Dosage: 66 MCG
  6. UBIDECARENONE [Concomitant]
  7. DILTIAZEM [Concomitant]
  8. AROTINOLOL (AROTINOLOL HYDROCHLORIDE) [Concomitant]
  9. FLURBIPROFEN [Concomitant]
  10. ATROPINE [Concomitant]
  11. NEOSTIGMINE [Concomitant]

REACTIONS (3)
  - APNOEIC ATTACK [None]
  - RESPIRATORY ARREST [None]
  - UNRESPONSIVE TO STIMULI [None]
